FAERS Safety Report 10496570 (Version 3)
Quarter: 2014Q4

REPORT INFORMATION
  Report Type: Spontaneous
  Country: FR (occurrence: FR)
  Receive Date: 20141005
  Receipt Date: 20141201
  Transmission Date: 20150528
  Serious: Yes (Death, Life-Threatening, Hospitalization)
  Sender: FDA-Public Use
  Company Number: FR-JNJFOC-20140920415

PATIENT
  Age: 39 Year
  Sex: Male
  Weight: 62 kg

DRUGS (5)
  1. RISPERDAL [Suspect]
     Active Substance: RISPERIDONE
     Indication: PSYCHOTIC DISORDER
     Dosage: IN ONE INTAKE
     Route: 048
     Dates: start: 20140916
  2. METHADONE [Suspect]
     Active Substance: METHADONE HYDROCHLORIDE
     Indication: DRUG ADMINISTRATION ERROR
     Dosage: 15 DROPS PER DAY
     Route: 048
     Dates: start: 20140916
  3. VALIUM [Suspect]
     Active Substance: DIAZEPAM
     Indication: PSYCHOTIC DISORDER
     Dosage: 15 DROPS PER DAY, ON 15-SEP-2014, 15 DROPS AT 8:00, 30 DROPS AT 12:00 AND 15 DROPS AT 22:00
     Route: 048
     Dates: start: 20140912, end: 20140916
  4. IMOVANE [Suspect]
     Active Substance: ZOPICLONE
     Indication: PRODUCT USED FOR UNKNOWN INDICATION
     Dosage: 15 DROPS PER DAY
     Route: 065
     Dates: start: 20140912
  5. LOXAPAC [Concomitant]
     Active Substance: LOXAPINE SUCCINATE
     Indication: PSYCHOTIC DISORDER
     Dosage: 50 DROPS??15-SEP-2014, THE PATIENT TOOK (25 DROPS AT 8:00, 25 DROPS AT 12H AND 50 DROPS AT 22:00)
     Route: 048
     Dates: start: 20140912, end: 20140915

REACTIONS (3)
  - Wrong patient received medication [Fatal]
  - Coma [Fatal]
  - Cardiac arrest [Recovered/Resolved]

NARRATIVE: CASE EVENT DATE: 20140916
